FAERS Safety Report 10429417 (Version 1)
Quarter: 2014Q3

REPORT INFORMATION
  Report Type: Spontaneous
  Country: US (occurrence: US)
  Receive Date: 20140904
  Receipt Date: 20140904
  Transmission Date: 20150326
  Serious: Yes (Other)
  Sender: FDA-Public Use
  Company Number: US-PERRIGO-14US008499

PATIENT
  Age: 12 Month
  Sex: Male

DRUGS (1)
  1. ACETAMINOPHEN CHILD BUBBLEGUM 32 MG/ML 105 [Suspect]
     Active Substance: ACETAMINOPHEN
     Indication: ACCIDENTAL EXPOSURE TO PRODUCT
     Dosage: APPROXIMATELY 1920 MG, SINGLE
     Route: 048
     Dates: start: 20140805, end: 20140805

REACTIONS (3)
  - Accidental overdose [Recovered/Resolved]
  - Incorrect product storage [Unknown]
  - Accidental exposure to product by child [None]

NARRATIVE: CASE EVENT DATE: 20140801
